FAERS Safety Report 18589186 (Version 2)
Quarter: 2020Q4

REPORT INFORMATION
  Report Type: Spontaneous
  Country: TR (occurrence: TR)
  Receive Date: 20201208
  Receipt Date: 20201224
  Transmission Date: 20210114
  Serious: Yes (Other)
  Sender: FDA-Public Use
  Company Number: TR-SUN PHARMACEUTICAL INDUSTRIES LTD-2020RR-270282

PATIENT
  Age: 47 Year
  Sex: Female

DRUGS (2)
  1. PLAVIX [Suspect]
     Active Substance: CLOPIDOGREL BISULFATE
     Indication: MENORRHAGIA
     Dosage: 75 MILLIGRAM, DAILY
     Route: 065
  2. ECOPIRIN [Suspect]
     Active Substance: ASPIRIN
     Indication: MENORRHAGIA
     Dosage: 100 MILLIGRAM, DAILY
     Route: 065

REACTIONS (1)
  - Cardiovascular disorder [Unknown]
